FAERS Safety Report 6526773-X (Version None)
Quarter: 2010Q1

REPORT INFORMATION
  Report Type: 
  Country: None (occurrence: None)
  Receive Date: 20100105
  Receipt Date: 20091229
  Transmission Date: 20100710
  Serious: Yes (Hospitalization, Other)
  Sender: FDA-Public Use
  Company Number: DE-BAYER-200929138GPV

PATIENT
  Age: 35 Year
  Sex: Female

DRUGS (1)
  1. MIRENA [Suspect]
     Indication: CONTRACEPTION
     Route: 015
     Dates: start: 20090514, end: 20090730

REACTIONS (12)
  - BENIGN INTRACRANIAL HYPERTENSION [None]
  - DIZZINESS [None]
  - EYE DISORDER [None]
  - HEADACHE [None]
  - NAUSEA [None]
  - NECK PAIN [None]
  - OCULAR HYPERAEMIA [None]
  - PAPILLOEDEMA [None]
  - POST LUMBAR PUNCTURE SYNDROME [None]
  - RETINAL HAEMORRHAGE [None]
  - TINNITUS [None]
  - VISION BLURRED [None]
